FAERS Safety Report 5368722-6 (Version None)
Quarter: 2007Q2

REPORT INFORMATION
  Report Type: 
  Country: None (occurrence: None)
  Receive Date: 20070625
  Receipt Date: 20070427
  Transmission Date: 20071010
  Serious: No
  Sender: FDA-Public Use
  Company Number: US-BRISTOL-MYERS SQUIBB COMPANY-13764071

PATIENT
  Sex: Female

DRUGS (10)
  1. ORENCIA [Suspect]
     Indication: RHEUMATOID ARTHRITIS
     Dates: start: 20070418
  2. CLARITIN [Concomitant]
  3. CELEBREX [Concomitant]
  4. CLONIDINE [Concomitant]
  5. NEURONTIN [Concomitant]
  6. NORVASC [Concomitant]
  7. NEXIUM [Concomitant]
  8. POTASSIUM ACETATE [Concomitant]
  9. NORCO [Concomitant]
  10. ASPIRIN [Concomitant]

REACTIONS (1)
  - JOINT SWELLING [None]
